FAERS Safety Report 13994767 (Version 1)
Quarter: 2017Q3

REPORT INFORMATION
  Report Type: Spontaneous
  Country: US (occurrence: US)
  Receive Date: 20170921
  Receipt Date: 20170921
  Transmission Date: 20171128
  Serious: No
  Sender: FDA-Public Use
  Company Number: US-BRISTOL-MYERS SQUIBB COMPANY-BMS-2017-084232

PATIENT
  Sex: Male
  Weight: 104.31 kg

DRUGS (1)
  1. ELIQUIS [Suspect]
     Active Substance: APIXABAN
     Indication: PRODUCT USED FOR UNKNOWN INDICATION
     Dosage: UNK, BID
     Route: 065

REACTIONS (6)
  - Hypoaesthesia [Unknown]
  - Rash macular [Unknown]
  - Acrochordon [Unknown]
  - Urticaria [Unknown]
  - Rash pruritic [Unknown]
  - Melanocytic naevus [Unknown]
